FAERS Safety Report 4842835-7 (Version None)
Quarter: 2005Q4

REPORT INFORMATION
  Report Type: 
  Country: None (occurrence: None)
  Receive Date: 20051129
  Receipt Date: 20051115
  Transmission Date: 20060501
  Serious: Yes (Other)
  Sender: FDA-Public Use
  Company Number: CA-2005-021194

PATIENT
  Age: 28 Year
  Sex: Male

DRUGS (5)
  1. BETASERON [Suspect]
     Indication: MULTIPLE SCLEROSIS
     Dosage: SEE IMAGE
     Route: 058
     Dates: start: 20051001, end: 20051005
  2. BETASERON [Suspect]
     Indication: MULTIPLE SCLEROSIS
     Dosage: SEE IMAGE
     Route: 058
     Dates: start: 20051007, end: 20051007
  3. AMITRIPTYLINE HCL [Concomitant]
  4. CELEBREX [Concomitant]
  5. TYLENOL (CAPLET) [Concomitant]

REACTIONS (9)
  - COLD SWEAT [None]
  - DIZZINESS [None]
  - FALL [None]
  - FEELING HOT [None]
  - INJURY [None]
  - LOSS OF CONSCIOUSNESS [None]
  - MUSCLE TIGHTNESS [None]
  - PAIN IN EXTREMITY [None]
  - TREMOR [None]
